FAERS Safety Report 17425764 (Version 1)
Quarter: 2020Q1

REPORT INFORMATION
  Report Type: Report from Study
  Country: US (occurrence: US)
  Receive Date: 20200217
  Receipt Date: 20200217
  Transmission Date: 20200409
  Serious: Yes (Hospitalization)
  Sender: FDA-Public Use
  Company Number: US-BRISTOL-MYERS SQUIBB COMPANY-BMS-2020-011815

PATIENT
  Age: 73 Year
  Sex: Female
  Weight: 67.6 kg

DRUGS (2)
  1. NIVOLUMAB [Suspect]
     Active Substance: NIVOLUMAB
     Indication: GALLBLADDER CANCER
     Dosage: 240 MILLIGRAM
     Route: 042
     Dates: start: 20190709
  2. IPILIMUMAB [Suspect]
     Active Substance: IPILIMUMAB
     Indication: GALLBLADDER CANCER
     Dosage: 77 MILLIGRAM
     Route: 042
     Dates: start: 20190709

REACTIONS (1)
  - Hypercalcaemia [Recovered/Resolved]

NARRATIVE: CASE EVENT DATE: 20191218
